FAERS Safety Report 4414109-X (Version None)
Quarter: 2004Q3

REPORT INFORMATION
  Report Type: 
  Country: None (occurrence: None)
  Receive Date: 20040728
  Receipt Date: 20040719
  Transmission Date: 20050211
  Serious: Yes (Life-Threatening)
  Sender: FDA-Public Use
  Company Number: 2004GB01775

PATIENT
  Age: 18 Year
  Sex: Male
  Weight: 90 kg

DRUGS (6)
  1. LISINOPRIL [Suspect]
     Indication: HYPERTENSION
     Dosage: 10 MG DAILY PO
     Route: 048
     Dates: start: 20030201
  2. DUKORAL [Suspect]
     Dates: start: 20040626, end: 20040626
  3. RABIPUR [Suspect]
     Dates: start: 20040626, end: 20040626
  4. FELODIPINE [Concomitant]
  5. ASPIRIN [Concomitant]
  6. VIAGRA [Concomitant]

REACTIONS (2)
  - FACE OEDEMA [None]
  - HYPERSENSITIVITY [None]
